FAERS Safety Report 9773024 (Version 1)
Quarter: 2013Q4

REPORT INFORMATION
  Report Type: Spontaneous
  Country: SA (occurrence: SA)
  Receive Date: 20131219
  Receipt Date: 20131219
  Transmission Date: 20140711
  Serious: Yes (Other)
  Sender: FDA-Public Use
  Company Number: SA-ROXANE LABORATORIES, INC.-2013-RO-01971RO

PATIENT
  Age: 55 Year
  Sex: Female

DRUGS (3)
  1. METHOTREXATE [Suspect]
     Indication: POLYARTHRITIS
  2. PREDNISOLONE [Suspect]
     Indication: POLYARTHRITIS
     Dosage: 10 MG
  3. FOLIC ACID [Suspect]
     Indication: POLYARTHRITIS

REACTIONS (1)
  - Mycobacterium abscessus infection [Unknown]
